FAERS Safety Report 6419414-3 (Version None)
Quarter: 2009Q4

REPORT INFORMATION
  Report Type: 
  Country: None (occurrence: None)
  Receive Date: 20091027
  Receipt Date: 20091012
  Transmission Date: 20100525
  Serious: Yes (Hospitalization)
  Sender: FDA-Public Use
  Company Number: AUR-APL-2009-00895

PATIENT
  Age: 86 Year
  Sex: Female

DRUGS (1)
  1. FLUOXETINE [Suspect]
     Dosage: 20MG - DAILY

REACTIONS (1)
  - INTERSTITIAL LUNG DISEASE [None]
